FAERS Safety Report 8878913 (Version 1)
Quarter: 2012Q4

REPORT INFORMATION
  Report Type: 
  Country: AT (occurrence: AT)
  Receive Date: 20121026
  Receipt Date: 20121026
  Transmission Date: 20130627
  Serious: Yes (Other)
  Sender: FDA-Public Use
  Company Number: AT-PFIZER INC-2012262158

PATIENT
  Age: 43 Year
  Sex: Male

DRUGS (2)
  1. METRONIDAZOLE [Suspect]
     Indication: HEPATIC AMOEBIASIS
     Dosage: 500 mg, 4x/day
     Route: 042
  2. CEFOTAXIME [Concomitant]
     Indication: HEPATIC AMOEBIASIS
     Dosage: 2 g, 3x/day

REACTIONS (2)
  - Drug ineffective [Unknown]
  - Liver abscess [Recovered/Resolved]
